FAERS Safety Report 4544249-6 (Version None)
Quarter: 2004Q4

REPORT INFORMATION
  Report Type: 
  Country: None (occurrence: None)
  Receive Date: 20041230
  Receipt Date: 20041220
  Transmission Date: 20050328
  Serious: No
  Sender: FDA-Public Use
  Company Number: 2004-122303-NL

PATIENT
  Age: 44 Year
  Sex: Female

DRUGS (2)
  1. ETONOGESTREL [Suspect]
     Indication: CONTRACEPTION
     Dosage: DF
     Route: 058
     Dates: start: 20040322, end: 20041101
  2. NUVARING [Suspect]

REACTIONS (3)
  - BENIGN BREAST NEOPLASM [None]
  - BREAST CANCER FEMALE [None]
  - BREAST PAIN [None]
